FAERS Safety Report 10788889 (Version 1)
Quarter: 2015Q1

REPORT INFORMATION
  Report Type: Spontaneous
  Country: US (occurrence: None)
  Receive Date: 20150211
  Receipt Date: 20150211
  Transmission Date: 20150721
  Serious: Yes (Other)
  Sender: FDA-Public Use
  Company Number: None

PATIENT
  Age: 72 Year
  Sex: Male
  Weight: 92.99 kg

DRUGS (1)
  1. ACETAMINOPHEN. [Suspect]
     Active Substance: ACETAMINOPHEN
     Indication: BACK PAIN
     Dates: start: 20150202

REACTIONS (4)
  - Musculoskeletal pain [None]
  - Neck pain [None]
  - Headache [None]
  - Paralysis [None]

NARRATIVE: CASE EVENT DATE: 20150203
